FAERS Safety Report 8185000-0 (Version None)
Quarter: 2012Q1

REPORT INFORMATION
  Report Type: 
  Country: None (occurrence: None)
  Receive Date: 20120305
  Receipt Date: 20120305
  Transmission Date: 20120608
  Serious: Yes (Other)
  Sender: FDA-Public Use
  Company Number: CN-BAYER-2012-021169

PATIENT
  Age: 57 Year
  Sex: Male

DRUGS (2)
  1. NEXAVAR [Suspect]
     Indication: RENAL CELL CARCINOMA
     Dosage: 2 DF, BID
     Dates: start: 20120101, end: 20120305
  2. NEXAVAR [Suspect]
     Indication: METASTASES TO LUNG

REACTIONS (1)
  - LIVER FUNCTION TEST ABNORMAL [None]
